FAERS Safety Report 23624780 (Version 1)
Quarter: 2024Q1

REPORT INFORMATION
  Report Type: Spontaneous
  Country: DE (occurrence: DE)
  Receive Date: 20240313
  Receipt Date: 20240313
  Transmission Date: 20240410
  Serious: Yes (Other)
  Sender: FDA-Public Use
  Company Number: None

PATIENT
  Age: 60 Year
  Sex: Female
  Weight: 135 kg

DRUGS (3)
  1. WEGOVY [Suspect]
     Active Substance: SEMAGLUTIDE
     Indication: Weight control
     Dosage: 0.25
     Route: 058
     Dates: start: 20240124
  2. WEGOVY [Suspect]
     Active Substance: SEMAGLUTIDE
     Indication: Obesity
  3. WEGOVY [Suspect]
     Active Substance: SEMAGLUTIDE
     Indication: Body mass index increased

REACTIONS (3)
  - Postmenopausal haemorrhage [Recovering/Resolving]
  - Pelvic pain [Recovering/Resolving]
  - Endometrial hypertrophy [Recovering/Resolving]

NARRATIVE: CASE EVENT DATE: 20240130
